FAERS Safety Report 13079288 (Version 2)
Quarter: 2017Q1

REPORT INFORMATION
  Report Type: Spontaneous
  Country: US (occurrence: US)
  Receive Date: 20170103
  Receipt Date: 20170106
  Transmission Date: 20170428
  Serious: Yes (Hospitalization, Other)
  Sender: FDA-Public Use
  Company Number: US-ROCHE-1873632

PATIENT
  Sex: Male
  Weight: 68 kg

DRUGS (6)
  1. TACROLIMUS. [Concomitant]
     Active Substance: TACROLIMUS
     Indication: RENAL TRANSPLANT
     Route: 065
     Dates: start: 201208, end: 20130710
  2. VALCYTE [Suspect]
     Active Substance: VALGANCICLOVIR HYDROCHLORIDE
     Indication: RENAL TRANSPLANT
     Dosage: EVERY WEDNESDAY AND SATURDAY
     Route: 048
     Dates: start: 20161221
  3. MYFORTIC [Concomitant]
     Active Substance: MYCOPHENOLATE SODIUM
     Indication: RENAL TRANSPLANT
     Route: 065
     Dates: start: 201208, end: 20130710
  4. MYFORTIC [Concomitant]
     Active Substance: MYCOPHENOLATE SODIUM
     Route: 065
     Dates: start: 20161221
  5. VALCYTE [Suspect]
     Active Substance: VALGANCICLOVIR HYDROCHLORIDE
     Indication: CYTOMEGALOVIRUS INFECTION
     Route: 048
     Dates: start: 201208, end: 201306
  6. TACROLIMUS. [Concomitant]
     Active Substance: TACROLIMUS
     Route: 065
     Dates: start: 20161220

REACTIONS (4)
  - Renal transplant failure [Recovered/Resolved]
  - Infection [Recovered/Resolved]
  - Arterial perforation [Recovered/Resolved]
  - Viral load increased [Recovered/Resolved]

NARRATIVE: CASE EVENT DATE: 2013
